FAERS Safety Report 9863264 (Version 1)
Quarter: 2014Q1

REPORT INFORMATION
  Report Type: Spontaneous
  Country: US (occurrence: US)
  Receive Date: 20140203
  Receipt Date: 20140203
  Transmission Date: 20141002
  Serious: No
  Sender: FDA-Public Use
  Company Number: US-TARO-2013P1018969

PATIENT
  Age: 75 Year
  Sex: Female
  Weight: 58.97 kg

DRUGS (9)
  1. NYSTATIN + TRIAMCINOLONE ACETONIDE CREAM USP [Suspect]
     Indication: FUNGAL INFECTION
     Route: 061
     Dates: start: 20130819, end: 20130826
  2. NYSTATIN + TRIAMCINOLONE ACETONIDE CREAM USP [Suspect]
     Indication: FUNGAL INFECTION
     Route: 067
     Dates: start: 20130819, end: 20130826
  3. NYSTATIN + TRIAMCINOLONE ACETONIDE CREAM USP [Suspect]
     Indication: FUNGAL INFECTION
     Route: 061
     Dates: start: 20130827, end: 201308
  4. NYSTATIN + TRIAMCINOLONE ACETONIDE CREAM USP [Suspect]
     Indication: FUNGAL INFECTION
     Route: 067
     Dates: start: 20130827, end: 201308
  5. NORTRIPTYLINE (TEVA) [Concomitant]
     Route: 048
     Dates: start: 201307
  6. UNSPECIFIED VITAMINS [Concomitant]
  7. SIMVASTATIN [Concomitant]
  8. XANAX [Concomitant]
  9. ALEVE [Concomitant]

REACTIONS (4)
  - Drug ineffective for unapproved indication [Not Recovered/Not Resolved]
  - Off label use [Not Recovered/Not Resolved]
  - Vulvovaginal dryness [Unknown]
  - Oestrogen deficiency [Unknown]
